FAERS Safety Report 15250124 (Version 1)
Quarter: 2018Q3

REPORT INFORMATION
  Report Type: Spontaneous
  Country: US (occurrence: US)
  Receive Date: 20180807
  Receipt Date: 20180807
  Transmission Date: 20181010
  Serious: Yes (Other)
  Sender: FDA-Public Use
  Company Number: US-B.I. PHARMACEUTICALS,INC./RIDGEFIELD-2018-BI-039009

PATIENT
  Sex: Male

DRUGS (1)
  1. PRADAXA [Suspect]
     Active Substance: DABIGATRAN ETEXILATE MESYLATE
     Indication: ARRHYTHMIA
     Dosage: BID; FORM STRENGTH:150 MG ADMINISTRATION CORRECT? YES ?ACTION(S) TAKEN WITH PRODUCT: DRUG WITHDRAWN
     Route: 048
     Dates: start: 201709, end: 2017

REACTIONS (10)
  - Headache [Unknown]
  - Balance disorder [Recovered/Resolved]
  - Headache [Recovered/Resolved]
  - Hydrocephalus [Recovered/Resolved]
  - Flatulence [Recovered/Resolved]
  - Haemarthrosis [Recovered/Resolved]
  - Off label use [Unknown]
  - Cupulolithiasis [Recovered/Resolved]
  - Prostatomegaly [Unknown]
  - Subdural haematoma [Recovered/Resolved]

NARRATIVE: CASE EVENT DATE: 2017
